FAERS Safety Report 7800217-X (Version None)
Quarter: 2011Q4

REPORT INFORMATION
  Report Type: 
  Country: None (occurrence: None)
  Receive Date: 20111004
  Receipt Date: 20110928
  Transmission Date: 20120403
  Serious: Yes (Life-Threatening, Hospitalization, Disabling, Other)
  Sender: FDA-Public Use
  Company Number: 2011SP041970

PATIENT
  Age: 31 Year
  Sex: Female
  Weight: 63.5 kg

DRUGS (15)
  1. LORAZEPAM [Suspect]
     Indication: SEDATIVE THERAPY
     Dosage: 1 MG;PO
     Route: 048
     Dates: start: 20110224, end: 20110410
  2. MIRTAZAPINE [Suspect]
     Indication: DEPRESSION
     Dosage: 30 MG;PO
     Route: 048
     Dates: start: 20101007, end: 20101012
  3. DOMPERIDONE (DOMPERIDONE) [Suspect]
     Indication: PRODUCT USED FOR UNKNOWN INDICATION
  4. CODEINE SULFATE [Suspect]
     Indication: ANALGESIC THERAPY
     Dosage: PO
     Route: 048
     Dates: start: 20110615, end: 20110723
  5. PHOSPHORATE (PHOSPHORUS) [Suspect]
     Indication: PRODUCT USED FOR UNKNOWN INDICATION
  6. QUETIAPINE FUMARATE [Suspect]
     Indication: PSYCHOTIC DISORDER
     Dosage: 300 MG;PO
     Route: 048
     Dates: start: 20110224, end: 20110506
  7. DIAZEPAM [Concomitant]
  8. OMEPRAZOLE [Suspect]
     Indication: GASTRIC PH DECREASED
     Dates: start: 20110301
  9. CLONAZEPAM [Suspect]
     Indication: SEDATIVE THERAPY
     Dosage: PO
     Route: 048
     Dates: start: 20110224, end: 20110410
  10. PROCYCLIDINE HYDROCHLORIDE 2MG TAB [Suspect]
     Indication: EXTRAPYRAMIDAL DISORDER
     Dosage: 20 MG;PO
     Route: 048
     Dates: start: 20110324, end: 20110506
  11. PAROXETINE HCL [Suspect]
     Indication: PRODUCT USED FOR UNKNOWN INDICATION
     Dosage: 20 MG;TID;PO
     Route: 048
     Dates: start: 19990101, end: 20110501
  12. TRAMADOL HCL [Suspect]
     Indication: ANALGESIC THERAPY
     Dosage: PO
     Route: 048
     Dates: start: 20081201, end: 20101210
  13. AMITRIPTYLINE HCL [Suspect]
     Indication: PRODUCT USED FOR UNKNOWN INDICATION
  14. PAROXETINE HCL [Suspect]
     Indication: DEPRESSION
     Dosage: 40 MG;PO
     Route: 048
     Dates: start: 19990801, end: 20110706
  15. PAROXETINE HCL [Suspect]
     Indication: POST-TRAUMATIC STRESS DISORDER
     Dosage: 40 MG;PO
     Route: 048
     Dates: start: 19990801, end: 20110706

REACTIONS (92)
  - CONTUSION [None]
  - MALAISE [None]
  - MATERNAL EXPOSURE DURING PREGNANCY [None]
  - CONVULSION [None]
  - NECK PAIN [None]
  - AGITATION [None]
  - EMOTIONAL DISORDER [None]
  - VOMITING [None]
  - OEDEMA MOUTH [None]
  - GAIT DISTURBANCE [None]
  - DRUG WITHDRAWAL SYNDROME [None]
  - NERVOUS SYSTEM DISORDER [None]
  - FEELING JITTERY [None]
  - ANXIETY [None]
  - MYALGIA [None]
  - VISUAL IMPAIRMENT [None]
  - PYREXIA [None]
  - SENSORY LOSS [None]
  - INCONTINENCE [None]
  - BALANCE DISORDER [None]
  - VIITH NERVE PARALYSIS [None]
  - TINNITUS [None]
  - COGWHEEL RIGIDITY [None]
  - NIGHTMARE [None]
  - MUSCLE SPASMS [None]
  - MANIA [None]
  - RESTLESS LEGS SYNDROME [None]
  - PREGNANCY [None]
  - TREMOR [None]
  - HYPERSOMNIA [None]
  - FEELING ABNORMAL [None]
  - HYPERHIDROSIS [None]
  - PALLOR [None]
  - GENERAL PHYSICAL HEALTH DETERIORATION [None]
  - URINARY RETENTION [None]
  - GASTRIC PH DECREASED [None]
  - DISORIENTATION [None]
  - SEROTONIN SYNDROME [None]
  - FEELING OF BODY TEMPERATURE CHANGE [None]
  - DRUG INTERACTION [None]
  - DISTURBANCE IN ATTENTION [None]
  - RESTLESSNESS [None]
  - ASTHENIA [None]
  - CYANOSIS [None]
  - H1N1 INFLUENZA [None]
  - INSOMNIA [None]
  - PARAESTHESIA [None]
  - PAROSMIA [None]
  - DROOLING [None]
  - PAIN IN EXTREMITY [None]
  - DYSPNOEA [None]
  - FEELING OF DESPAIR [None]
  - DELIRIUM [None]
  - MENSTRUATION IRREGULAR [None]
  - MOOD SWINGS [None]
  - HALLUCINATION, AUDITORY [None]
  - HYPOAESTHESIA [None]
  - SWELLING FACE [None]
  - EYE PAIN [None]
  - DYSTONIA [None]
  - SLEEP DISORDER [None]
  - DECREASED APPETITE [None]
  - DIZZINESS [None]
  - BLOOD SODIUM DECREASED [None]
  - PSYCHOTIC DISORDER [None]
  - DISSOCIATION [None]
  - LIP SWELLING [None]
  - PUPILLARY DISORDER [None]
  - NEUROLEPTIC MALIGNANT SYNDROME [None]
  - TACHYCARDIA [None]
  - FATIGUE [None]
  - ROAD TRAFFIC ACCIDENT [None]
  - CONFUSIONAL STATE [None]
  - SUICIDAL IDEATION [None]
  - SWOLLEN TONGUE [None]
  - VISION BLURRED [None]
  - POISONING [None]
  - MUSCULOSKELETAL STIFFNESS [None]
  - HYPOTONIA [None]
  - PREMATURE LABOUR [None]
  - BACK PAIN [None]
  - HEADACHE [None]
  - ARTHRALGIA [None]
  - MUSCLE DISORDER [None]
  - IRRITABILITY [None]
  - DEPRESSION [None]
  - DEPERSONALISATION [None]
  - PRURITUS [None]
  - SPEECH DISORDER [None]
  - SCHIZOPHRENIA [None]
  - SKIN DISCOLOURATION [None]
  - APHASIA [None]
